FAERS Safety Report 17777769 (Version 3)
Quarter: 2021Q4

REPORT INFORMATION
  Report Type: Report from Study
  Country: US (occurrence: US)
  Receive Date: 20200513
  Receipt Date: 20211102
  Transmission Date: 20220303
  Serious: Yes (Death, Other)
  Sender: FDA-Public Use
  Company Number: US-ACADIA PHARMACEUTICALS INC.-ACA-2019-014817

PATIENT
  Age: 75 Year
  Sex: Female

DRUGS (11)
  1. NUPLAZID [Suspect]
     Active Substance: PIMAVANSERIN TARTRATE
     Indication: Parkinson^s disease psychosis
     Dosage: 34 MG, QD THROUGH A PEG TUBE
     Route: 065
  2. NUPLAZID [Suspect]
     Active Substance: PIMAVANSERIN TARTRATE
     Indication: Hallucination
     Dosage: 34 MILLIGRAM, QD
     Route: 048
  3. NUPLAZID [Suspect]
     Active Substance: PIMAVANSERIN TARTRATE
     Indication: Delusion
  4. ADVIL [Concomitant]
     Active Substance: IBUPROFEN
  5. BONIVA [Concomitant]
     Active Substance: IBANDRONATE SODIUM
  6. DIAZEPAM [Concomitant]
     Active Substance: DIAZEPAM
  7. DRISDOL [Concomitant]
     Active Substance: ERGOCALCIFEROL
  8. LEVOXYL [Concomitant]
     Active Substance: LEVOTHYROXINE SODIUM
  9. VITAMINS [Concomitant]
     Active Substance: VITAMINS
  10. VALIUM [Concomitant]
     Active Substance: DIAZEPAM
  11. VYTORIN [Concomitant]
     Active Substance: EZETIMIBE\SIMVASTATIN

REACTIONS (3)
  - Death [Fatal]
  - Dysphagia [Unknown]
  - Wrong technique in product usage process [Unknown]

NARRATIVE: CASE EVENT DATE: 20211001
